FAERS Safety Report 23656005 (Version 1)
Quarter: 2024Q1

REPORT INFORMATION
  Report Type: Spontaneous
  Country: GB (occurrence: None)
  Receive Date: 20240321
  Receipt Date: 20240321
  Transmission Date: 20240409
  Serious: Yes (Other)
  Sender: FDA-Public Use
  Company Number: 2024A063266

PATIENT
  Age: 60 Year
  Sex: Male

DRUGS (5)
  1. DAPAGLIFLOZIN [Suspect]
     Active Substance: DAPAGLIFLOZIN
     Route: 048
     Dates: start: 20240213
  2. CANDESARTAN [Concomitant]
     Active Substance: CANDESARTAN
     Dosage: EVERY DAY
     Dates: start: 20231108
  3. DOXAZOSIN [Concomitant]
     Active Substance: DOXAZOSIN MESYLATE
     Dosage: EVERY DAY
     Dates: start: 20231108
  4. METFORMIN [Concomitant]
     Active Substance: METFORMIN HYDROCHLORIDE
     Dosage: TWO TIMES A DAY
     Dates: start: 20231108
  5. TRULICITY [Concomitant]
     Active Substance: DULAGLUTIDE
     Dosage: INJECT THE CONTENTS OF ONE PREFILLED PEN ONCE A...
     Dates: start: 20231108

REACTIONS (3)
  - Dizziness [Unknown]
  - Nightmare [Unknown]
  - Arthralgia [Unknown]

NARRATIVE: CASE EVENT DATE: 20240213
